FAERS Safety Report 5782939-8 (Version None)
Quarter: 2008Q2

REPORT INFORMATION
  Report Type: 
  Country: None (occurrence: None)
  Receive Date: 20080624
  Receipt Date: 20080616
  Transmission Date: 20081010
  Serious: Yes (Life-Threatening, Other)
  Sender: FDA-Public Use
  Company Number: BR-ABBOTT-08P-020-0458037-00

PATIENT
  Sex: Male

DRUGS (1)
  1. HUMIRA [Suspect]
     Indication: RHEUMATOID ARTHRITIS
     Dosage: 1 APPLICATION EVERY 14 DAYS
     Route: 058
     Dates: start: 20070501, end: 20071201

REACTIONS (5)
  - ABASIA [None]
  - DYSPHAGIA [None]
  - INFLAMMATION [None]
  - OSTEITIS [None]
  - RESPIRATORY ARREST [None]
